FAERS Safety Report 13769934 (Version 1)
Quarter: 2017Q3

REPORT INFORMATION
  Report Type: Spontaneous
  Country: CN (occurrence: CN)
  Receive Date: 20170719
  Receipt Date: 20170719
  Transmission Date: 20171127
  Serious: Yes (Other)
  Sender: FDA-Public Use
  Company Number: CN-ASTRAZENECA-2017SE74011

PATIENT
  Age: 17322 Day
  Sex: Female
  Weight: 73 kg

DRUGS (8)
  1. EXENATIDE. [Suspect]
     Active Substance: EXENATIDE
     Indication: DIABETES MELLITUS
     Route: 030
     Dates: start: 20160314
  2. EXENATIDE. [Suspect]
     Active Substance: EXENATIDE
     Indication: DIABETES MELLITUS
     Route: 030
     Dates: start: 20160316, end: 20160316
  3. HYPOTENSOR [Concomitant]
  4. SAXAGLIPTIN [Concomitant]
     Active Substance: SAXAGLIPTIN
     Route: 048
  5. TERAZOSIN HYDROCHLORIDE. [Suspect]
     Active Substance: TERAZOSIN HYDROCHLORIDE
     Indication: HYPERTENSION
     Route: 048
     Dates: start: 20170315, end: 20170317
  6. LEVEMIR [Concomitant]
     Active Substance: INSULIN DETEMIR
     Dosage: 22IU IH QN
  7. VOGLIBOSE [Concomitant]
     Active Substance: VOGLIBOSE
     Route: 048
  8. NORVASC [Suspect]
     Active Substance: AMLODIPINE BESYLATE
     Indication: HYPERTENSION
     Route: 048
     Dates: start: 20160316, end: 20160317

REACTIONS (2)
  - Tremor [Recovered/Resolved]
  - Dizziness [Recovered/Resolved]

NARRATIVE: CASE EVENT DATE: 20170316
